FAERS Safety Report 4703248-1 (Version None)
Quarter: 2005Q2

REPORT INFORMATION
  Report Type: 
  Country: None (occurrence: None)
  Receive Date: 20050629
  Receipt Date: 20050510
  Transmission Date: 20051028
  Serious: Yes (Hospitalization)
  Sender: FDA-Public Use
  Company Number: US-ABBOTT-05P-163-0300437-00

PATIENT
  Sex: Female

DRUGS (3)
  1. HUMIRA [Suspect]
     Indication: RHEUMATOID ARTHRITIS
     Route: 058
     Dates: start: 20040501, end: 20050504
  2. IBUPROFEN [Concomitant]
     Indication: NECK PAIN
     Route: 048
  3. CLONAZEPAM [Concomitant]
     Indication: SLEEP DISORDER
     Route: 048

REACTIONS (6)
  - BACK PAIN [None]
  - BLOOD URINE PRESENT [None]
  - HYDRONEPHROSIS [None]
  - NECK PAIN [None]
  - PNEUMONIA [None]
  - URINARY TRACT INFECTION [None]
